FAERS Safety Report 9314863 (Version 1)
Quarter: 2013Q2

REPORT INFORMATION
  Report Type: Spontaneous
  Country: CN (occurrence: CN)
  Receive Date: 20130529
  Receipt Date: 20130529
  Transmission Date: 20140414
  Serious: Yes (Other)
  Sender: FDA-Public Use
  Company Number: CN-ASTRAZENECA-2013SE37261

PATIENT
  Age: 8 Year
  Sex: Male

DRUGS (1)
  1. SYMBICORT [Suspect]
     Indication: ASTHMA
     Dosage: 2 INHALATIONS TWO TIMES A DAY
     Route: 055
     Dates: start: 20110501, end: 20110522

REACTIONS (3)
  - Myopia [Unknown]
  - Vitreous disorder [Unknown]
  - Rhinitis allergic [Unknown]
